FAERS Safety Report 17941751 (Version 1)
Quarter: 2020Q2

REPORT INFORMATION
  Report Type: Spontaneous
  Country: US (occurrence: US)
  Receive Date: 20200625
  Receipt Date: 20200625
  Transmission Date: 20200714
  Serious: No
  Sender: FDA-Public Use
  Company Number: US-SA-2020SA157186

PATIENT

DRUGS (1)
  1. PRALUENT [Suspect]
     Active Substance: ALIROCUMAB
     Indication: BLOOD CHOLESTEROL ABNORMAL
     Dosage: 75 MG, QOW
     Dates: start: 20200614, end: 20200614

REACTIONS (10)
  - Injection site swelling [Recovered/Resolved]
  - Rhinorrhoea [Recovered/Resolved]
  - Feeling abnormal [Recovering/Resolving]
  - Oropharyngeal discomfort [Recovered/Resolved]
  - Nasopharyngitis [Recovering/Resolving]
  - Headache [Not Recovered/Not Resolved]
  - Injection site erythema [Recovering/Resolving]
  - Condition aggravated [Recovering/Resolving]
  - Injection site pain [Recovering/Resolving]
  - Peripheral swelling [Recovering/Resolving]

NARRATIVE: CASE EVENT DATE: 20200614
